FAERS Safety Report 25306357 (Version 2)
Quarter: 2025Q3

REPORT INFORMATION
  Report Type: Spontaneous
  Country: US (occurrence: US)
  Receive Date: 20250513
  Receipt Date: 20250818
  Transmission Date: 20251020
  Serious: Yes (Death)
  Sender: LUNDBECK
  Company Number: US-LUNDBECK-DKLU4014294

PATIENT
  Age: 74 Year
  Sex: Male

DRUGS (3)
  1. NORTHERA [Suspect]
     Active Substance: DROXIDOPA
     Indication: Autonomic neuropathy
     Dosage: 300 MILLIGRAM
     Route: 048
     Dates: start: 202308, end: 20250404
  2. FUROSEMIDE [Concomitant]
     Active Substance: FUROSEMIDE
     Indication: Product used for unknown indication
  3. COREG [Concomitant]
     Active Substance: CARVEDILOL
     Indication: Product used for unknown indication

REACTIONS (4)
  - Myocardial infarction [Fatal]
  - Hypotension [Fatal]
  - Fluid retention [Fatal]
  - Pneumonia [Fatal]
